FAERS Safety Report 5226381-7 (Version None)
Quarter: 2007Q1

REPORT INFORMATION
  Report Type: 
  Country: None (occurrence: None)
  Receive Date: 20061201
  Receipt Date: 20061024
  Transmission Date: 20070707
  Serious: No
  Sender: FDA-Public Use
  Company Number: US200610004440

PATIENT
  Sex: Female

DRUGS (2)
  1. CYMBALTA [Suspect]
     Indication: DEPRESSION
     Dosage: 60 MG, DAILY (1/D)
     Dates: start: 20061001
  2. PROZAC [Suspect]
     Indication: DEPRESSION

REACTIONS (4)
  - DRUG INEFFECTIVE [None]
  - HYPERHIDROSIS [None]
  - MUSCLE SPASMS [None]
  - RHINORRHOEA [None]
